FAERS Safety Report 9643029 (Version 4)
Quarter: 2013Q4

REPORT INFORMATION
  Report Type: Spontaneous
  Country: JP (occurrence: JP)
  Receive Date: 20131024
  Receipt Date: 20131205
  Transmission Date: 20140711
  Serious: Yes (Life-Threatening, Hospitalization, Other)
  Sender: FDA-Public Use
  Company Number: JP-PFIZER INC-2013277311

PATIENT
  Age: 43 Year
  Sex: Female
  Weight: 59 kg

DRUGS (5)
  1. LYRICA [Suspect]
     Indication: NEURALGIA
     Dosage: 150 MG, 2X/DAY
     Route: 048
     Dates: end: 2013
  2. LYRICA [Suspect]
     Dosage: TOTAL DOSE 1500 MG
     Route: 048
     Dates: start: 20130926, end: 20130926
  3. JZOLOFT [Concomitant]
     Indication: DEPRESSION
     Dosage: 50 MG, 1X/DAY
     Route: 048
     Dates: start: 20120803
  4. ETIZOLAM [Concomitant]
     Indication: DEPRESSION
     Dosage: 0.5 MG, 2X/DAY
     Route: 048
     Dates: start: 20121116
  5. MEILAX [Concomitant]
     Indication: NEUROSIS
     Dosage: 0.5 MG, 1X/DAY
     Route: 048
     Dates: start: 20130301, end: 20130905

REACTIONS (6)
  - Suicide attempt [Recovered/Resolved]
  - Intentional overdose [Unknown]
  - Altered state of consciousness [Recovered/Resolved]
  - Musculoskeletal stiffness [Recovered/Resolved]
  - Somnolence [Unknown]
  - Muscle spasms [Recovered/Resolved]
